FAERS Safety Report 9372193 (Version 1)
Quarter: 2013Q2

REPORT INFORMATION
  Report Type: Report from Study
  Country: US (occurrence: US)
  Receive Date: 20130627
  Receipt Date: 20130627
  Transmission Date: 20140414
  Serious: Yes (Other)
  Sender: FDA-Public Use
  Company Number: US-MYLANLABS-2012S1016807

PATIENT
  Age: 47 Year
  Sex: Male

DRUGS (8)
  1. CLOZAPINE TABLETS [Suspect]
     Indication: SCHIZOPHRENIA
     Route: 048
     Dates: end: 20120807
  2. CHLORPROMAZINE [Concomitant]
     Route: 048
  3. AMBIEN [Concomitant]
     Route: 048
  4. INVEGA SUSTENNA [Concomitant]
  5. LOPID [Concomitant]
     Route: 048
  6. TOPROL [Concomitant]
     Route: 048
  7. LATUDA [Concomitant]
     Route: 048
  8. LISINOPRIL [Concomitant]
     Route: 048

REACTIONS (2)
  - Granulocytopenia [Not Recovered/Not Resolved]
  - Leukopenia [Not Recovered/Not Resolved]
